FAERS Safety Report 21773602 (Version 2)
Quarter: 2023Q1

REPORT INFORMATION
  Report Type: Spontaneous
  Country: US (occurrence: US)
  Receive Date: 20221223
  Receipt Date: 20230320
  Transmission Date: 20230418
  Serious: No
  Sender: FDA-Public Use
  Company Number: US-SA-SAC20221221000178

PATIENT
  Sex: Male

DRUGS (1)
  1. DUPIXENT [Suspect]
     Active Substance: DUPILUMAB
     Dosage: 200 MG, OTHER
     Route: 058

REACTIONS (6)
  - Fatigue [Unknown]
  - Diarrhoea [Unknown]
  - Arthritis [Unknown]
  - Chest discomfort [Unknown]
  - Myalgia [Unknown]
  - Arthralgia [Unknown]
